FAERS Safety Report 12556102 (Version 1)
Quarter: 2016Q3

REPORT INFORMATION
  Report Type: Spontaneous
  Country: US (occurrence: US)
  Receive Date: 20160714
  Receipt Date: 20160714
  Transmission Date: 20161109
  Serious: No
  Sender: FDA-Public Use
  Company Number: US-ELI_LILLY_AND_COMPANY-US201606009379

PATIENT
  Sex: Male

DRUGS (4)
  1. FISH OIL [Concomitant]
     Active Substance: FISH OIL
     Indication: PRODUCT USED FOR UNKNOWN INDICATION
     Dosage: UNK, UNKNOWN
     Route: 065
  2. ASPIRIN                            /00002701/ [Concomitant]
     Active Substance: ASPIRIN
     Indication: PRODUCT USED FOR UNKNOWN INDICATION
     Dosage: UNK, UNKNOWN
     Route: 065
  3. CIALIS [Suspect]
     Active Substance: TADALAFIL
     Indication: BLADDER DISORDER
     Dosage: 20 MG, QD
     Route: 065
     Dates: start: 2010
  4. CIALIS [Suspect]
     Active Substance: TADALAFIL
     Indication: PROSTATIC OPERATION
     Dosage: 20 MG, WEEKLY (1/W)
     Route: 065

REACTIONS (5)
  - Off label use [Unknown]
  - Drug dose omission [Unknown]
  - Pollakiuria [Unknown]
  - Wrong technique in product usage process [Unknown]
  - Inappropriate schedule of drug administration [Unknown]
